FAERS Safety Report 6148960-5 (Version None)
Quarter: 2009Q2

REPORT INFORMATION
  Report Type: 
  Country: None (occurrence: None)
  Receive Date: 20090406
  Receipt Date: 20090323
  Transmission Date: 20091009
  Serious: Yes (Life-Threatening)
  Sender: FDA-Public Use
  Company Number: THYR-1000132

PATIENT
  Age: 60 Year
  Sex: Male

DRUGS (1)
  1. THYROGEN [Suspect]
     Indication: DIAGNOSTIC PROCEDURE
     Dosage: 1 VIAD QD, INTRAMUSCULAR
     Route: 030
     Dates: start: 20090201, end: 20090201

REACTIONS (2)
  - CHEST PAIN [None]
  - NEOPLASM SWELLING [None]
